FAERS Safety Report 9993226 (Version 2)
Quarter: 2014Q2

REPORT INFORMATION
  Report Type: Spontaneous
  Country: US (occurrence: US)
  Receive Date: 20140310
  Receipt Date: 20140422
  Transmission Date: 20141212
  Serious: Yes (Other)
  Sender: FDA-Public Use
  Company Number: US-PFIZER INC-2014067343

PATIENT
  Age: 94 Year
  Sex: Male

DRUGS (2)
  1. LYRICA [Suspect]
     Dosage: 50 MG, UNK
  2. LYRICA [Suspect]
     Dosage: 75 MG, UNK

REACTIONS (10)
  - Haemorrhage [Unknown]
  - Angioedema [Unknown]
  - Nephropathy [Unknown]
  - Blood creatinine increased [Unknown]
  - Anaemia [Recovering/Resolving]
  - Hypertension [Unknown]
  - Insomnia [Recovered/Resolved]
  - Back pain [Recovered/Resolved]
  - Pain [Recovering/Resolving]
  - Oedema peripheral [Recovered/Resolved]
